FAERS Safety Report 5504155-7 (Version None)
Quarter: 2007Q4

REPORT INFORMATION
  Report Type: 
  Country: None (occurrence: None)
  Receive Date: 20071101
  Receipt Date: 20071031
  Transmission Date: 20080405
  Serious: Yes (Hospitalization)
  Sender: FDA-Public Use
  Company Number: A0690786A

PATIENT
  Age: 69 Year
  Sex: Female

DRUGS (10)
  1. ADVAIR DISKUS 100/50 [Suspect]
     Indication: ASTHMA
     Dosage: 1PUFF TWICE PER DAY
     Route: 055
     Dates: start: 20010101, end: 20071001
  2. SPIRIVA [Concomitant]
  3. ALBUTEROL [Concomitant]
  4. VYTORIN [Concomitant]
  5. LEVOTHYROXINE SODIUM [Concomitant]
  6. PREDNISONE [Concomitant]
  7. QVAR 40 [Concomitant]
  8. SSKI [Concomitant]
  9. POTASSIUM CHLORIDE [Concomitant]
  10. OXYGEN [Concomitant]

REACTIONS (3)
  - HYPOXIA [None]
  - LOSS OF CONSCIOUSNESS [None]
  - PNEUMONIA [None]
